FAERS Safety Report 20164337 (Version 1)
Quarter: 2021Q4

REPORT INFORMATION
  Report Type: Spontaneous
  Country: CA (occurrence: CA)
  Receive Date: 20211209
  Receipt Date: 20211209
  Transmission Date: 20220303
  Serious: Yes (Hospitalization)
  Sender: FDA-Public Use
  Company Number: CA-TEVA-2021-CA-1984239

PATIENT
  Age: 88 Year
  Sex: Female

DRUGS (20)
  1. PREDNISONE [Suspect]
     Active Substance: PREDNISONE
     Dosage: 30 MILLIGRAM DAILY;
     Route: 048
  2. AMLODIPINE [Concomitant]
     Active Substance: AMLODIPINE BESYLATE
     Route: 065
  3. ASPIRIN [Concomitant]
     Active Substance: ASPIRIN
     Route: 065
  4. ATROVENT [Concomitant]
     Active Substance: IPRATROPIUM BROMIDE
     Route: 065
  5. AZITHROMYCIN [Concomitant]
     Active Substance: AZITHROMYCIN
  6. CEFTRIAXONE [Concomitant]
     Active Substance: CEFTRIAXONE
  7. ELIQUIS [Concomitant]
     Active Substance: APIXABAN
  8. FLOVENT [Concomitant]
     Active Substance: FLUTICASONE PROPIONATE
  9. INSULIN GLARGINE [Concomitant]
     Active Substance: INSULIN GLARGINE
  10. LASIX [Concomitant]
     Active Substance: FUROSEMIDE
  11. POLYETHYLENE GLYCOL 3350 [Concomitant]
     Active Substance: POLYETHYLENE GLYCOL 3350
  12. INSULIN LISPRO [Concomitant]
     Active Substance: INSULIN LISPRO
  13. NITRO-DUR [Concomitant]
     Active Substance: NITROGLYCERIN
  14. PANTOPRAZOLE [Concomitant]
     Active Substance: PANTOPRAZOLE
  15. GLYCOPYRROLATE [Concomitant]
     Active Substance: GLYCOPYRROLATE
  16. SENOKOT [Concomitant]
     Active Substance: SENNOSIDES
  17. SERTRALINE [Concomitant]
     Active Substance: SERTRALINE HYDROCHLORIDE
  18. TRAZODONE [Concomitant]
     Active Substance: TRAZODONE HYDROCHLORIDE
  19. TYLENOL [Concomitant]
     Active Substance: ACETAMINOPHEN
  20. VENTOLIN [Concomitant]
     Active Substance: ALBUTEROL SULFATE
     Route: 055

REACTIONS (2)
  - Diabetes mellitus inadequate control [Unknown]
  - Hyperglycaemia [Unknown]
